FAERS Safety Report 18072103 (Version 2)
Quarter: 2020Q3

REPORT INFORMATION
  Report Type: Spontaneous
  Country: US (occurrence: US)
  Receive Date: 20200727
  Receipt Date: 20200728
  Transmission Date: 20201103
  Serious: No
  Sender: FDA-Public Use
  Company Number: US-PFIZER INC-2020283972

PATIENT
  Sex: Female

DRUGS (1)
  1. CYTOMEL [Suspect]
     Active Substance: LIOTHYRONINE SODIUM
     Dosage: 5 UG, 2X/DAY (ONCE IN THE MORNING AND ONCE AT NIGHT)
     Route: 048

REACTIONS (3)
  - Gastritis [Unknown]
  - Abdominal pain upper [Unknown]
  - Off label use [Unknown]
